FAERS Safety Report 14082746 (Version 1)
Quarter: 2017Q4

REPORT INFORMATION
  Report Type: Spontaneous
  Country: JP (occurrence: JP)
  Receive Date: 20171013
  Receipt Date: 20171013
  Transmission Date: 20180321
  Serious: Yes (Death, Hospitalization, Other)
  Sender: FDA-Public Use
  Company Number: JP-BRISTOL-MYERS SQUIBB COMPANY-12269155

PATIENT
  Age: 49 Year
  Sex: Male

DRUGS (3)
  1. ZERIT [Suspect]
     Active Substance: STAVUDINE
     Indication: ACQUIRED IMMUNODEFICIENCY SYNDROME
     Dosage: UNK
     Route: 048
     Dates: start: 20011101
  2. EPIVIR [Suspect]
     Active Substance: LAMIVUDINE
     Indication: ACQUIRED IMMUNODEFICIENCY SYNDROME
     Dosage: UNK
     Route: 048
     Dates: start: 20011101
  3. VIRACEPT [Suspect]
     Active Substance: NELFINAVIR MESYLATE
     Indication: ACQUIRED IMMUNODEFICIENCY SYNDROME
     Dosage: UNK
     Route: 048
     Dates: start: 20011101

REACTIONS (5)
  - Death [Fatal]
  - Haematemesis [Unknown]
  - Pancytopenia [Unknown]
  - Liver disorder [Unknown]
  - Melaena [Unknown]

NARRATIVE: CASE EVENT DATE: 200111
